FAERS Safety Report 17164445 (Version 2)
Quarter: 2020Q2

REPORT INFORMATION
  Report Type: Report from Study
  Country: None (occurrence: CO)
  Receive Date: 20191217
  Receipt Date: 20200408
  Transmission Date: 20200713
  Serious: Yes (Hospitalization, Other)
  Sender: FDA-Public Use
  Company Number: CO-ABBVIE-19K-036-3196507-00

PATIENT
  Age: 50 Year
  Sex: Male
  Weight: 56 kg

DRUGS (1)
  1. ZEMPLAR [Suspect]
     Active Substance: PARICALCITOL
     Indication: HYPERPARATHYROIDISM SECONDARY
     Route: 042
     Dates: start: 20160309, end: 20191211

REACTIONS (5)
  - Pain [Recovering/Resolving]
  - Blood parathyroid hormone increased [Recovering/Resolving]
  - Fall [Recovered/Resolved]
  - Myocardial infarction [Unknown]
  - Hip fracture [Unknown]

NARRATIVE: CASE EVENT DATE: 201911
